FAERS Safety Report 6402276-8 (Version None)
Quarter: 2009Q4

REPORT INFORMATION
  Report Type: 
  Country: None (occurrence: None)
  Receive Date: 20091015
  Receipt Date: 20091005
  Transmission Date: 20100525
  Serious: Yes (Other)
  Sender: FDA-Public Use
  Company Number: PHEH2009US13049

PATIENT
  Sex: Female

DRUGS (4)
  1. RECLAST [Suspect]
     Dosage: UNK
     Dates: start: 20080722
  2. BENAZEPRIL HYDROCHLORIDE [Concomitant]
  3. TAMOXIFEN CITRATE [Concomitant]
  4. RESVERATROL [Concomitant]

REACTIONS (3)
  - BREAST CANCER RECURRENT [None]
  - CHEST DISCOMFORT [None]
  - METASTASES TO LUNG [None]
